FAERS Safety Report 11819561 (Version 1)
Quarter: 2015Q4

REPORT INFORMATION
  Report Type: Spontaneous
  Country: US (occurrence: None)
  Receive Date: 20151209
  Receipt Date: 20151209
  Transmission Date: 20160305
  Serious: Yes (Other)
  Sender: FDA-Public Use
  Company Number: None

PATIENT
  Age: 59 Year
  Sex: Female
  Weight: 56.7 kg

DRUGS (17)
  1. KITAFUSION GUMMY B-12 [Concomitant]
  2. VITAFUSION GUMY MULTIVITES [Concomitant]
  3. JANUMET [Concomitant]
     Active Substance: METFORMIN HYDROCHLORIDE\SITAGLIPTIN PHOSPHATE
  4. DOXYCYCLINE HYCLATE. [Concomitant]
     Active Substance: DOXYCYCLINE HYCLATE
  5. ANTIHISTAMINE [Concomitant]
     Active Substance: UNSPECIFIED INGREDIENT
  6. OSTEO BI-FLEX [Concomitant]
     Active Substance: CHONDROITIN SULFATE A\GLUCOSAMINE
  7. FEROCAN [Concomitant]
  8. ZONESAMIDE [Concomitant]
  9. INVOKANA [Suspect]
     Active Substance: CANAGLIFLOZIN
     Indication: TYPE 2 DIABETES MELLITUS
     Dosage: BY MOUTH
     Dates: start: 20150918
  10. LORATADINE. [Concomitant]
     Active Substance: LORATADINE
  11. VITAMINS + MAGNESIUM [Concomitant]
  12. OMEPRAZOLE. [Concomitant]
     Active Substance: OMEPRAZOLE
  13. VITAFUSION GUMMY POWER C [Concomitant]
  14. CALCIUM CITRATE [Concomitant]
     Active Substance: CALCIUM CITRATE
  15. VITAMIN D3 [Concomitant]
     Active Substance: CHOLECALCIFEROL
  16. BIOTIN SKIN + NAIL HEALTH [Concomitant]
  17. FIBER WELL GUMMIES [Concomitant]

REACTIONS (4)
  - Throat irritation [None]
  - Alopecia [None]
  - Aphonia [None]
  - Dysphonia [None]

NARRATIVE: CASE EVENT DATE: 20151001
